FAERS Safety Report 23904016 (Version 3)
Quarter: 2025Q2

REPORT INFORMATION
  Report Type: Report from Study
  Country: KR (occurrence: KR)
  Receive Date: 20240527
  Receipt Date: 20250403
  Transmission Date: 20250716
  Serious: Yes (Hospitalization, Other)
  Sender: CELLTRION
  Company Number: KR-CELLTRION INC.-2024KR011669

PATIENT

DRUGS (34)
  1. INFLIXIMAB-DYYB [Suspect]
     Active Substance: INFLIXIMAB-DYYB
     Indication: Colitis ulcerative
     Route: 058
     Dates: start: 20240319
  2. INFLIXIMAB-DYYB [Suspect]
     Active Substance: INFLIXIMAB-DYYB
     Route: 058
     Dates: start: 20240509
  3. INFLIXIMAB-DYYB [Suspect]
     Active Substance: INFLIXIMAB-DYYB
     Route: 058
     Dates: start: 20250306
  4. INFLIXIMAB [Suspect]
     Active Substance: INFLIXIMAB
     Indication: Colitis ulcerative
     Route: 042
     Dates: start: 20240201
  5. INFLIXIMAB [Suspect]
     Active Substance: INFLIXIMAB
     Route: 042
     Dates: start: 20240215
  6. DIETARY SUPPLEMENT\HERBALS\MILK THISTLE [Concomitant]
     Active Substance: MILK THISTLE
     Indication: Liver function test increased
     Route: 048
     Dates: start: 20240326, end: 20240515
  7. DIETARY SUPPLEMENT\HERBALS\MILK THISTLE [Concomitant]
     Active Substance: MILK THISTLE
     Route: 048
     Dates: start: 20240328
  8. DIETARY SUPPLEMENT\HERBALS\MILK THISTLE [Concomitant]
     Active Substance: MILK THISTLE
     Route: 048
     Dates: start: 20241101
  9. PENNEL [ALLIUM SATIVUM OIL] [Concomitant]
     Indication: Liver function test increased
     Route: 048
     Dates: start: 20240326, end: 20240528
  10. PENNEL [ALLIUM SATIVUM OIL] [Concomitant]
     Indication: Abdominal pain
     Route: 048
     Dates: start: 20240517
  11. PENNEL [ALLIUM SATIVUM OIL] [Concomitant]
     Route: 048
     Dates: start: 20250204
  12. ORAFANG [Concomitant]
     Indication: Premedication
     Route: 048
     Dates: start: 20240514, end: 20240515
  13. NEXIUM I.V. [Concomitant]
     Active Substance: ESOMEPRAZOLE SODIUM
     Indication: Gastrointestinal disorder prophylaxis
     Route: 042
     Dates: start: 20240515, end: 20240518
  14. GASOCOL [Concomitant]
     Indication: Abdominal pain
     Route: 048
     Dates: start: 20240517, end: 20240519
  15. FLOSPAN [Concomitant]
     Indication: Abdominal pain
     Route: 048
     Dates: start: 20240517, end: 20240529
  16. POLYBUTINE [TRIMEBUTINE] [Concomitant]
     Indication: Abdominal pain
     Route: 048
     Dates: start: 20240521, end: 20240529
  17. ERDOSTEINE [Concomitant]
     Active Substance: ERDOSTEINE
     Indication: Abdominal pain
     Route: 048
     Dates: start: 20240517, end: 20240529
  18. L-TIRIZINE [Concomitant]
     Indication: Abdominal pain
     Route: 048
     Dates: start: 20240517, end: 20240529
  19. CEFDITOREN PIVOXIL [Concomitant]
     Active Substance: CEFDITOREN PIVOXIL
     Indication: Oropharyngeal pain
     Route: 048
     Dates: start: 20240521, end: 20240529
  20. K CONTIN CONTINUS [Concomitant]
     Indication: Blood potassium decreased
     Route: 048
     Dates: start: 20240521, end: 20240529
  21. BENZETHONIUM CHLORIDE [Concomitant]
     Active Substance: BENZETHONIUM CHLORIDE
     Indication: Oropharyngeal pain
     Dates: start: 20240521, end: 20240529
  22. SYNERJET [Concomitant]
     Indication: Oropharyngeal pain
     Route: 048
     Dates: start: 20240521
  23. TACENOL [Concomitant]
     Indication: Oropharyngeal pain
     Route: 048
     Dates: start: 20240520, end: 20240520
  24. CAROL-F [Concomitant]
     Indication: Oropharyngeal pain
     Route: 048
     Dates: start: 20240521, end: 20240521
  25. TANDOL [Concomitant]
     Indication: Myalgia
     Route: 042
     Dates: start: 20240515, end: 20240519
  26. CHLORPHENIRAMINE MALEATE HUONS [Concomitant]
     Indication: Pruritus
     Route: 042
     Dates: start: 20240518, end: 20240518
  27. ALVERIX [Concomitant]
     Indication: Abdominal pain
     Route: 048
     Dates: start: 20240329, end: 20240923
  28. ALVERIX [Concomitant]
     Indication: Myalgia
     Route: 048
     Dates: start: 20240903
  29. FLOSPAN D [Concomitant]
     Indication: Abdominal pain
     Route: 048
     Dates: start: 20240329
  30. FLOSPAN D [Concomitant]
     Indication: Gastrointestinal disorder prophylaxis
     Route: 048
     Dates: start: 20240903, end: 20240923
  31. ESTRADIOL VALERATE [Concomitant]
     Active Substance: ESTRADIOL VALERATE
     Indication: Menopausal symptoms
     Route: 048
     Dates: start: 20240909
  32. TGFENON [Concomitant]
     Indication: Hyperlipidaemia
     Route: 048
     Dates: start: 20240809
  33. TALEAJE [Concomitant]
     Indication: Radiculopathy
     Route: 048
     Dates: start: 20250210
  34. ENTELON [Concomitant]
     Indication: Varicose vein
     Route: 048
     Dates: start: 20241002

REACTIONS (3)
  - Colitis ulcerative [Recovered/Resolved]
  - Gastroenteritis [Recovering/Resolving]
  - Overdose [Unknown]

NARRATIVE: CASE EVENT DATE: 20240509
